FAERS Safety Report 20933477 (Version 1)
Quarter: 2022Q2

REPORT INFORMATION
  Report Type: Spontaneous
  Country: US (occurrence: US)
  Receive Date: 20220608
  Receipt Date: 20220608
  Transmission Date: 20220721
  Serious: No
  Sender: FDA-Public Use
  Company Number: US-PFIZER INC-202200797880

PATIENT
  Age: 84 Year
  Sex: Male

DRUGS (1)
  1. PAXLOVID [Suspect]
     Active Substance: NIRMATRELVIR\RITONAVIR
     Indication: COVID-19 treatment
     Dosage: 2 DF (1 RITONAVIR TABLET ALONG WITH THE RENAL DOSING OF 1 NIRMATRELVIR TABLET)

REACTIONS (1)
  - Incorrect dose administered [Unknown]
